FAERS Safety Report 19319552 (Version 1)
Quarter: 2021Q2

REPORT INFORMATION
  Report Type: Spontaneous
  Country: US (occurrence: US)
  Receive Date: 20210527
  Receipt Date: 20210527
  Transmission Date: 20210717
  Serious: Yes (Hospitalization)
  Sender: FDA-Public Use
  Company Number: None

PATIENT
  Age: 70 Year
  Sex: Male

DRUGS (1)
  1. XGEVA [Suspect]
     Active Substance: DENOSUMAB
     Indication: PLASMA CELL MYELOMA
     Route: 058
     Dates: start: 20200929

REACTIONS (3)
  - Inappropriate schedule of product administration [None]
  - Hospitalisation [None]
  - Product dispensing issue [None]

NARRATIVE: CASE EVENT DATE: 20210524
